FAERS Safety Report 14033701 (Version 2)
Quarter: 2017Q4

REPORT INFORMATION
  Report Type: Report from Study
  Country: BR (occurrence: BR)
  Receive Date: 20171003
  Receipt Date: 20171101
  Transmission Date: 20180321
  Serious: Yes (Other)
  Sender: FDA-Public Use
  Company Number: PHHY2017BR143095

PATIENT
  Sex: Male
  Weight: 64 kg

DRUGS (4)
  1. DIOVAN AMLO FIX [Suspect]
     Active Substance: AMLODIPINE\VALSARTAN
     Dosage: 1 DF (AMLODIPINE 5MG AND VALSARTAN 80 MG), QD (15 YEARS AGO)
     Route: 048
  2. GALVUS [Concomitant]
     Active Substance: VILDAGLIPTIN
     Indication: DIABETES MELLITUS
     Dosage: 2 DF, QD (APPROX 8 YEARS)
     Route: 048
  3. DIOVAN AMLO FIX [Suspect]
     Active Substance: AMLODIPINE\VALSARTAN
     Indication: HYPERTENSION
     Dosage: 0.5 DF (AMLODIPINE 5MG AND VALSARTAN 80 MG), QD
     Route: 065
  4. ASA [Concomitant]
     Active Substance: ASPIRIN
     Indication: COAGULOPATHY
     Dosage: 1 DF, QD (10 YEARS AGO)
     Route: 048

REACTIONS (7)
  - Wrong technique in product usage process [Not Recovered/Not Resolved]
  - Hemiplegia [Recovering/Resolving]
  - Cerebrovascular accident [Recovering/Resolving]
  - Coronary artery occlusion [Recovering/Resolving]
  - Depression [Recovering/Resolving]
  - Blood cholesterol increased [Recovering/Resolving]
  - Speech disorder [Recovering/Resolving]
